FAERS Safety Report 9639706 (Version 1)
Quarter: 2013Q4

REPORT INFORMATION
  Report Type: Spontaneous
  Country: US (occurrence: None)
  Receive Date: 20131021
  Receipt Date: 20131021
  Transmission Date: 20140711
  Serious: Yes (Death)
  Sender: FDA-Public Use
  Company Number: None

PATIENT
  Age: 24 Year
  Sex: Male
  Weight: 169.19 kg

DRUGS (3)
  1. ABILIFY [Suspect]
     Indication: AUTISM
     Dosage: 1 PILL ONCE A DAY
     Route: 048
     Dates: start: 20110428, end: 20130222
  2. ABILIFY 30 MG [Concomitant]
  3. A SLEEP AID [Concomitant]

REACTIONS (10)
  - Loss of consciousness [None]
  - Sudden death [None]
  - Cardiac arrest [None]
  - Weight increased [None]
  - Anxiety [None]
  - Headache [None]
  - Respiratory disorder [None]
  - Screaming [None]
  - Drug prescribing error [None]
  - Condition aggravated [None]
